FAERS Safety Report 22120149 (Version 1)
Quarter: 2023Q1

REPORT INFORMATION
  Report Type: Other
  Country: US (occurrence: None)
  Receive Date: 20230321
  Receipt Date: 20230321
  Transmission Date: 20230417
  Serious: No
  Sender: FDA-Public Use
  Company Number: US-ROCHE-3251497

PATIENT
  Age: 66 Year
  Sex: Male

DRUGS (1)
  1. VISMODEGIB [Suspect]
     Active Substance: VISMODEGIB
     Indication: Basal cell naevus syndrome
     Route: 048

REACTIONS (6)
  - Colitis [Unknown]
  - Apoptosis [Unknown]
  - Enteritis [Unknown]
  - Alopecia [Unknown]
  - Dysgeusia [Unknown]
  - Muscle spasms [Unknown]
